FAERS Safety Report 19061988 (Version 2)
Quarter: 2021Q2

REPORT INFORMATION
  Report Type: Report from Study
  Country: BH (occurrence: BH)
  Receive Date: 20210325
  Receipt Date: 20210414
  Transmission Date: 20210717
  Serious: Yes (Death)
  Sender: FDA-Public Use
  Company Number: BH-BAXTER-2021BAX005736

PATIENT

DRUGS (1)
  1. PARACETAMOL IV APOTEX [Suspect]
     Active Substance: ACETAMINOPHEN
     Indication: PATENT DUCTUS ARTERIOSUS
     Dosage: ON FOURTH POST NATAL DAY OF LIFE
     Route: 042

REACTIONS (1)
  - Hepatotoxicity [Fatal]
